FAERS Safety Report 18186519 (Version 2)
Quarter: 2020Q3

REPORT INFORMATION
  Report Type: Spontaneous
  Country: JP (occurrence: JP)
  Receive Date: 20200824
  Receipt Date: 20200901
  Transmission Date: 20201103
  Serious: Yes (Hospitalization, Other)
  Sender: FDA-Public Use
  Company Number: JP-ACCORD-197074

PATIENT
  Age: 61 Year
  Sex: Male

DRUGS (3)
  1. BEVACIZUMAB. [Suspect]
     Active Substance: BEVACIZUMAB
     Indication: COLON CANCER METASTATIC
     Dosage: 7.5 MG/KG/DAY 1 DAY
  2. CAPECITABINE. [Suspect]
     Active Substance: CAPECITABINE
     Indication: COLON CANCER METASTATIC
     Dosage: 3,000 MG//BODY DAY 2 WEEKLY ORAL 1 WEEK OFF
     Route: 048
  3. OXALIPLATIN. [Suspect]
     Active Substance: OXALIPLATIN
     Indication: COLON CANCER METASTATIC
     Dosage: 130 MG//M//2/DAY 1 DAY

REACTIONS (3)
  - Mesenteric artery embolism [Recovered/Resolved]
  - Cerebral infarction [Unknown]
  - Aortic thrombosis [Recovered/Resolved]
